FAERS Safety Report 25229231 (Version 1)
Quarter: 2025Q2

REPORT INFORMATION
  Report Type: Other
  Country: FR (occurrence: FR)
  Receive Date: 20250423
  Receipt Date: 20250423
  Transmission Date: 20250717
  Serious: Yes (Hospitalization)
  Sender: ZYDUS PHARM
  Company Number: None

PATIENT

DRUGS (5)
  1. SERTRALINE [Suspect]
     Active Substance: SERTRALINE HYDROCHLORIDE
     Indication: Toxicity to various agents
     Route: 048
     Dates: start: 20250309, end: 20250309
  2. TERALITHE [Suspect]
     Active Substance: LITHIUM CARBONATE
     Indication: Toxicity to various agents
     Route: 048
     Dates: start: 20250309, end: 20250309
  3. LAMOTRIGINE [Suspect]
     Active Substance: LAMOTRIGINE
     Indication: Toxicity to various agents
     Route: 048
     Dates: start: 20250309, end: 20250309
  4. LORMETAZEPAM [Suspect]
     Active Substance: LORMETAZEPAM
     Indication: Toxicity to various agents
     Route: 048
     Dates: start: 20250309, end: 20250309
  5. TRANXENE [Suspect]
     Active Substance: CLORAZEPATE DIPOTASSIUM
     Indication: Toxicity to various agents
     Route: 048
     Dates: start: 20250309, end: 20250309

REACTIONS (6)
  - Bezoar [Recovered/Resolved]
  - Altered state of consciousness [Recovered/Resolved]
  - Hyponatraemia [Recovered/Resolved]
  - Thrombocytopenia [Recovered/Resolved]
  - Toxicity to various agents [Recovered/Resolved]
  - Drug level increased [Recovered/Resolved]

NARRATIVE: CASE EVENT DATE: 20250309
